FAERS Safety Report 12578092 (Version 1)
Quarter: 2016Q3

REPORT INFORMATION
  Report Type: Spontaneous
  Country: US (occurrence: US)
  Receive Date: 20160721
  Receipt Date: 20160721
  Transmission Date: 20161109
  Serious: No
  Sender: FDA-Public Use
  Company Number: US-009507513-1607USA005662

PATIENT

DRUGS (1)
  1. JANUVIA [Suspect]
     Active Substance: SITAGLIPTIN PHOSPHATE
     Dosage: 50MG/ ONCE DAILY
     Route: 048

REACTIONS (4)
  - Intercepted drug administration error [Unknown]
  - No adverse event [Unknown]
  - Product use issue [Unknown]
  - Wrong technique in product usage process [Unknown]
